FAERS Safety Report 23195413 (Version 1)
Quarter: 2023Q4

REPORT INFORMATION
  Report Type: Spontaneous
  Country: FR (occurrence: FR)
  Receive Date: 20231117
  Receipt Date: 20231117
  Transmission Date: 20240110
  Serious: Yes (Hospitalization)
  Sender: FDA-Public Use
  Company Number: None

PATIENT
  Age: 18 Year
  Sex: Male
  Weight: 62 kg

DRUGS (6)
  1. DOXORUBICIN HYDROCHLORIDE [Suspect]
     Active Substance: DOXORUBICIN HYDROCHLORIDE
     Indication: B-cell lymphoma
     Dosage: DOSAGE NOT PROVIDED, C1 09/26/2023, C2 12/10/2023, THERAPY END DATE: NASK
     Route: 065
     Dates: start: 20230926
  2. VINCRISTINE SULFATE [Suspect]
     Active Substance: VINCRISTINE SULFATE
     Indication: B-cell lymphoma
     Dosage: DOSAGE NOT PROVIDED, C1 09/26/2023, C2 12/10/2023, THERAPY END DATE : NASK
     Route: 065
     Dates: start: 20230926
  3. PREDNISONE [Suspect]
     Active Substance: PREDNISONE
     Indication: B-cell lymphoma
     Dosage: DOSAGE NOT PROVIDED, C1 09/26/2023, C2 12/10/2023, THERAPY END DATE : NASK
     Route: 065
     Dates: start: 20230926
  4. BACTRIM [Suspect]
     Active Substance: SULFAMETHOXAZOLE\TRIMETHOPRIM
     Indication: Prophylaxis
     Dosage: UNIT DOSE : 1 DF, FREQUENCY TIME : 2 DAYS, DURATION : 17 DAYS
     Route: 065
     Dates: start: 20230926, end: 20231013
  5. RITUXIMAB [Suspect]
     Active Substance: RITUXIMAB
     Indication: B-cell lymphoma
     Dosage: DOSAGE NOT PROVIDED, C1 09/26/2023, C2 12/10/2023, RITUXIMAB ((MAMMAL/HAMSTER/CHO CELLS)), THERAPY E
     Route: 065
     Dates: start: 20230926
  6. CYCLOPHOSPHAMIDE [Suspect]
     Active Substance: CYCLOPHOSPHAMIDE
     Indication: B-cell lymphoma
     Dosage: DOSAGE NOT PROVIDED, C1 09/26/2023, C2 12/10/2023, THERAPY END DATE : NASK
     Route: 065
     Dates: start: 20230926

REACTIONS (1)
  - Pancreatitis acute [Recovered/Resolved]

NARRATIVE: CASE EVENT DATE: 20231013
